FAERS Safety Report 7238261 (Version 5)
Quarter: 2020Q3

REPORT INFORMATION
  Report Type: Report from Study
  Country: US (occurrence: US)
  Receive Date: 20100106
  Receipt Date: 20110215
  Transmission Date: 20201104
  Serious: Yes (Hospitalization, Other)
  Sender: FDA-Public Use
  Company Number: US-JNJFOC-20091202329

PATIENT
  Age: 51 Year
  Sex: Female
  Weight: 78.6 kg

DRUGS (23)
  1. ADVIL [Concomitant]
     Active Substance: IBUPROFEN
     Route: 048
  2. ULTRAM [Concomitant]
     Active Substance: TRAMADOL HYDROCHLORIDE
     Route: 048
  3. LIDODERM [Concomitant]
     Active Substance: LIDOCAINE
     Route: 061
  4. FOSAMAX [Concomitant]
     Active Substance: ALENDRONATE SODIUM
     Route: 048
  5. TRAMADOL. [Concomitant]
     Active Substance: TRAMADOL
     Route: 048
  6. CALCIUM W/VITAMIN D NOS [Concomitant]
     Active Substance: CALCIUM\VITAMIN D
     Route: 048
  7. LASIX [Concomitant]
     Active Substance: FUROSEMIDE
     Route: 048
  8. USTEKINUMAB [Suspect]
     Active Substance: USTEKINUMAB
     Indication: CROHN^S DISEASE
  9. ESTRADIOL W/NORETHISTERONE [Concomitant]
     Route: 048
  10. FLEXERIL [Concomitant]
     Active Substance: CYCLOBENZAPRINE HYDROCHLORIDE
     Route: 048
  11. XANAX [Concomitant]
     Active Substance: ALPRAZOLAM
     Route: 048
  12. SYNTHROID [Concomitant]
     Active Substance: LEVOTHYROXINE SODIUM
     Route: 048
  13. OMEPRAZOLE. [Concomitant]
     Active Substance: OMEPRAZOLE
     Route: 048
  14. MULTIVITAMINS [Concomitant]
     Active Substance: VITAMINS
     Route: 048
  15. NEOSAL [Concomitant]
     Route: 061
  16. USTEKINUMAB [Suspect]
     Active Substance: USTEKINUMAB
  17. PLACEBO [Suspect]
     Active Substance: UNSPECIFIED INGREDIENT
     Indication: CROHN^S DISEASE
     Route: 058
  18. NIFEREX (POLYSACCHARIDE?IRON COMPLEX) [Concomitant]
     Active Substance: IRON\POLYSACCHARIDES
     Route: 048
  19. CYMBALTA [Concomitant]
     Active Substance: DULOXETINE HYDROCHLORIDE
     Route: 048
  20. FLECTOR [Concomitant]
     Active Substance: DICLOFENAC EPOLAMINE
     Route: 061
  21. PREDNISONE. [Concomitant]
     Active Substance: PREDNISONE
     Indication: CROHN^S DISEASE
     Route: 048
  22. LYRICA [Concomitant]
     Active Substance: PREGABALIN
     Route: 048
  23. DARVOCET?N 100 [Concomitant]
     Active Substance: ACETAMINOPHEN\PROPOXYPHENE NAPSYLATE
     Route: 048

REACTIONS (2)
  - Gastroenteritis viral [Recovered/Resolved]
  - Suicidal ideation [Recovered/Resolved]

NARRATIVE: CASE EVENT DATE: 20091202
